FAERS Safety Report 25241175 (Version 1)
Quarter: 2025Q2

REPORT INFORMATION
  Report Type: Spontaneous
  Country: HU (occurrence: HU)
  Receive Date: 20250425
  Receipt Date: 20250425
  Transmission Date: 20250717
  Serious: Yes (Other)
  Sender: TEVA
  Company Number: HU-TEVA-VS-3302594

PATIENT
  Age: 56 Year
  Sex: Female
  Weight: 68 kg

DRUGS (2)
  1. AJOVY [Suspect]
     Active Substance: FREMANEZUMAB-VFRM
     Indication: Migraine prophylaxis
     Dosage: DATE OF THE INJECTION: 28 OCT, 2024, TIME: 10:30 A.M. BATCH NUMBER: TBXBO5C. INJECTION SITE: ABDO...
     Route: 065
     Dates: start: 202406
  2. Emozul (esomeprazole) [Concomitant]
     Indication: Gastrooesophageal reflux disease

REACTIONS (7)
  - Swollen tongue [Recovered/Resolved]
  - Enlarged uvula [Recovered/Resolved]
  - Erythema [Recovered/Resolved]
  - Eye swelling [Recovered/Resolved]
  - Dry eye [Recovered/Resolved]
  - Eye pruritus [Recovered/Resolved]
  - Lip swelling [Recovered/Resolved]

NARRATIVE: CASE EVENT DATE: 20241028
